FAERS Safety Report 8372775-0 (Version None)
Quarter: 2012Q2

REPORT INFORMATION
  Report Type: 
  Country: None (occurrence: None)
  Receive Date: 20120521
  Receipt Date: 20120515
  Transmission Date: 20120825
  Serious: Yes (Other)
  Sender: FDA-Public Use
  Company Number: GR-PFIZER INC-2012118552

PATIENT
  Age: 29 Year
  Sex: Male

DRUGS (4)
  1. LORAZEPAM [Concomitant]
     Indication: ANXIETY
     Dosage: 4 DF, PER DAY
     Dates: start: 20050101
  2. EZETIMIBE [Concomitant]
     Dosage: UNK
  3. LIPITOR [Suspect]
     Indication: TYPE IIA HYPERLIPIDAEMIA
     Dosage: 40 MG (2X20MG), 1X/DAY (AT THE NIGHT)
     Route: 048
     Dates: start: 20060101
  4. ZOLOFT [Concomitant]
     Indication: ANXIETY
     Dosage: 200 MG (2X100MG), PER DAY
     Dates: start: 20050101

REACTIONS (2)
  - HEPATIC STEATOSIS [None]
  - HEPATOMEGALY [None]
